FAERS Safety Report 5503503-1 (Version None)
Quarter: 2007Q4

REPORT INFORMATION
  Report Type: 
  Country: None (occurrence: None)
  Receive Date: 20071031
  Receipt Date: 20071026
  Transmission Date: 20080405
  Serious: Yes (Hospitalization)
  Sender: FDA-Public Use
  Company Number: ES-MERCK-0710ESP00050

PATIENT
  Age: 92 Year
  Sex: Female

DRUGS (7)
  1. COZAAR [Suspect]
     Indication: HYPERTENSION
     Route: 048
     Dates: start: 20070907
  2. COZAAR [Suspect]
     Indication: RENAL HYPERTENSION
     Route: 048
     Dates: start: 20070907
  3. ARCOXIA [Suspect]
     Indication: OSTEOARTHRITIS
     Route: 048
     Dates: start: 20070801, end: 20070913
  4. HIDROSALURETIL [Suspect]
     Indication: HYPERTENSION
     Route: 048
     Dates: start: 20070907, end: 20070913
  5. HIDROSALURETIL [Suspect]
     Indication: RENAL HYPERTENSION
     Route: 048
     Dates: start: 20070907, end: 20070913
  6. AMLODIPINE BESYLATE [Concomitant]
     Indication: HYPERTENSION
     Route: 048
     Dates: start: 20070907
  7. AMLODIPINE BESYLATE [Concomitant]
     Indication: RENAL HYPERTENSION
     Route: 048
     Dates: start: 20070907

REACTIONS (2)
  - DRUG INTERACTION [None]
  - HYPONATRAEMIA [None]
